FAERS Safety Report 6874468-5 (Version None)
Quarter: 2010Q3

REPORT INFORMATION
  Report Type: 
  Country: None (occurrence: None)
  Receive Date: 20100722
  Receipt Date: 20100722
  Transmission Date: 20110219
  Serious: No
  Sender: FDA-Public Use
  Company Number: None

PATIENT
  Age: 55 Year
  Sex: Female

DRUGS (1)
  1. BACLOFEN [Suspect]
     Route: 037

REACTIONS (5)
  - ASTHENIA [None]
  - DEVICE COMPUTER ISSUE [None]
  - INCORRECT DOSE ADMINISTERED [None]
  - MEDICATION ERROR [None]
  - MUSCULAR WEAKNESS [None]
